FAERS Safety Report 10918787 (Version 3)
Quarter: 2015Q2

REPORT INFORMATION
  Report Type: Spontaneous
  Country: US (occurrence: US)
  Receive Date: 20150316
  Receipt Date: 20150615
  Transmission Date: 20150821
  Serious: Yes (Other)
  Sender: FDA-Public Use
  Company Number: US-ASTELLAS-2015US003968

PATIENT
  Sex: Male

DRUGS (1)
  1. XTANDI [Suspect]
     Active Substance: ENZALUTAMIDE
     Indication: PROSTATE CANCER
     Route: 048

REACTIONS (5)
  - Back pain [Recovered/Resolved]
  - Renal pain [Recovered/Resolved]
  - Fall [Unknown]
  - Chest pain [Recovered/Resolved]
  - Angina pectoris [Recovering/Resolving]

NARRATIVE: CASE EVENT DATE: 2014
